FAERS Safety Report 9720600 (Version 1)
Quarter: 2013Q4

REPORT INFORMATION
  Report Type: Report from Study
  Country: PH (occurrence: PH)
  Receive Date: 20131129
  Receipt Date: 20131129
  Transmission Date: 20140711
  Serious: No
  Sender: FDA-Public Use
  Company Number: PHHY2013PH137841

PATIENT
  Sex: Female

DRUGS (4)
  1. TASIGNA [Suspect]
     Indication: CHRONIC MYELOID LEUKAEMIA
     Dosage: 600 MG, UNK
     Route: 048
  2. TASIGNA [Suspect]
     Dosage: DOSE REDUCED
     Route: 048
  3. LOSARTAN [Concomitant]
     Indication: HYPERTENSION
     Dosage: UNK
     Route: 048
  4. METOPROLOL [Concomitant]
     Indication: HYPERTENSION
     Dosage: UNK
     Route: 048

REACTIONS (4)
  - Rash pruritic [Recovering/Resolving]
  - Skin exfoliation [Recovering/Resolving]
  - Skin hypertrophy [Recovering/Resolving]
  - Rash maculo-papular [Recovering/Resolving]
